FAERS Safety Report 10376733 (Version 1)
Quarter: 2014Q3

REPORT INFORMATION
  Report Type: Spontaneous
  Country: US (occurrence: US)
  Receive Date: 20140811
  Receipt Date: 20140811
  Transmission Date: 20150326
  Serious: No
  Sender: FDA-Public Use
  Company Number: US-009507513-1408USA006447

PATIENT

DRUGS (1)
  1. NASONEX [Suspect]
     Active Substance: MOMETASONE FUROATE
     Dosage: NOT ON A DAILY BASIS
     Route: 045
     Dates: start: 201202

REACTIONS (4)
  - Off label use [Unknown]
  - Product quality issue [Unknown]
  - No adverse event [Unknown]
  - Drug administration error [Unknown]
